FAERS Safety Report 8975259 (Version 1)
Quarter: 2012Q4

REPORT INFORMATION
  Report Type: 
  Country: US (occurrence: US)
  Receive Date: 20121219
  Receipt Date: 20121219
  Transmission Date: 20130627
  Serious: No
  Sender: FDA-Public Use
  Company Number: US-AMGEN-USASP2012064081

PATIENT
  Age: 66 Year
  Sex: Female

DRUGS (1)
  1. PROLIA [Suspect]
     Indication: OSTEOPOROSIS POSTMENOPAUSAL
     Dosage: UNK
     Dates: start: 20120411

REACTIONS (5)
  - Neuropathy peripheral [Unknown]
  - Burning sensation [Unknown]
  - Gait disturbance [Unknown]
  - Paraesthesia [Unknown]
  - Paraesthesia oral [Unknown]
